FAERS Safety Report 7733065-X (Version None)
Quarter: 2011Q3

REPORT INFORMATION
  Report Type: 
  Country: None (occurrence: None)
  Receive Date: 20110907
  Receipt Date: 20110901
  Transmission Date: 20111222
  Serious: No
  Sender: FDA-Public Use
  Company Number: US-PFIZER INC-2011205285

PATIENT
  Sex: Female
  Weight: 72.562 kg

DRUGS (4)
  1. DILANTIN [Suspect]
     Indication: EPILEPSY
     Dosage: 100 MG, 3X/DAY
     Route: 048
     Dates: start: 19860101
  2. TRAZODONE [Concomitant]
     Indication: DEPRESSION
     Dosage: UNK
  3. SYNTHROID [Concomitant]
     Indication: GOITRE
     Dosage: UNK
  4. REMERON [Concomitant]
     Indication: DEPRESSION
     Dosage: UNK

REACTIONS (1)
  - HYPERSENSITIVITY [None]
